FAERS Safety Report 14839340 (Version 19)
Quarter: 2019Q1

REPORT INFORMATION
  Report Type: Spontaneous
  Country: DE (occurrence: DE)
  Receive Date: 20180502
  Receipt Date: 20190211
  Transmission Date: 20190417
  Serious: Yes (Death, Life-Threatening, Hospitalization, Other)
  Sender: FDA-Public Use
  Company Number: DE-BAUSCH-BL-2018-012079

PATIENT
  Age: 73 Year
  Sex: Female
  Weight: 69 kg

DRUGS (63)
  1. DIAZEPAM. [Suspect]
     Active Substance: DIAZEPAM
     Indication: RESTLESSNESS
     Route: 048
     Dates: start: 20010616, end: 20010703
  2. DIAZEPAM. [Suspect]
     Active Substance: DIAZEPAM
     Route: 048
     Dates: start: 20010616, end: 20010703
  3. AMARYL [Suspect]
     Active Substance: GLIMEPIRIDE
     Indication: DIABETES MELLITUS
     Route: 048
     Dates: start: 20010616, end: 20010703
  4. PANTOZOL [Suspect]
     Active Substance: PANTOPRAZOLE SODIUM
     Dosage: 40 MG, (DOSE DECREASED FROM 80 TO 40 MG DAILY)
     Route: 048
     Dates: start: 2001, end: 20010714
  5. TRANXENE [Suspect]
     Active Substance: CLORAZEPATE DIPOTASSIUM
     Indication: RESTLESSNESS
     Route: 048
     Dates: start: 20010710, end: 20010714
  6. DIGOXIN. [Suspect]
     Active Substance: DIGOXIN
     Indication: CORONARY ARTERY DISEASE
     Route: 048
     Dates: start: 20010703, end: 20010714
  7. MOLSIDOMINE [Suspect]
     Active Substance: MOLSIDOMINE
     Indication: CORONARY ARTERY DISEASE
     Dosage: 16-8 MG
     Route: 048
     Dates: start: 20010703, end: 20010714
  8. MOLSIDOMINE [Suspect]
     Active Substance: MOLSIDOMINE
     Route: 048
     Dates: start: 20010703, end: 20010714
  9. DECORTIN [Suspect]
     Active Substance: PREDNISONE
     Indication: DYSPNOEA
     Route: 048
     Dates: start: 20010703, end: 20010703
  10. NORVASC [Suspect]
     Active Substance: AMLODIPINE BESYLATE
     Route: 048
     Dates: start: 20010703, end: 20010714
  11. HALOPERIDOL DECANOATE. [Concomitant]
     Active Substance: HALOPERIDOL DECANOATE
     Indication: RESTLESSNESS
     Route: 048
     Dates: start: 20010713, end: 20010714
  12. SODIUM PERCHLORATE [Concomitant]
     Active Substance: SODIUM PERCHLORATE
     Indication: PRODUCT USED FOR UNKNOWN INDICATION
     Route: 065
     Dates: start: 20010618, end: 20010714
  13. METFORMIN HYDROCHLORIDE. [Suspect]
     Active Substance: METFORMIN HYDROCHLORIDE
     Indication: DIABETES MELLITUS
     Route: 048
     Dates: start: 20010616, end: 20010714
  14. IRENAT [Suspect]
     Active Substance: SODIUM PERCHLORATE
     Indication: HYPERTHYROIDISM
     Dosage: TOTAL DAILY DOSE RANGED FROM 1376.8 MG TO 2065.2 MG
     Route: 048
     Dates: start: 20010618, end: 20010714
  15. DIGOXIN. [Suspect]
     Active Substance: DIGOXIN
     Route: 048
     Dates: start: 20010703, end: 20010714
  16. FRAGMIN [Suspect]
     Active Substance: DALTEPARIN SODIUM
     Indication: THROMBOSIS PROPHYLAXIS
     Dosage: 2500 IU (DAILY DOSE)
     Route: 058
     Dates: start: 20010703, end: 20010714
  17. TRANXENE [Suspect]
     Active Substance: CLORAZEPATE DIPOTASSIUM
     Indication: RESTLESSNESS
     Route: 048
     Dates: start: 20010710, end: 20010714
  18. KALIUM [Concomitant]
     Active Substance: POTASSIUM CHLORIDE
     Indication: PRODUCT USED FOR UNKNOWN INDICATION
     Route: 065
     Dates: start: 20010703, end: 20010714
  19. PARACETAMOL [Suspect]
     Active Substance: ACETAMINOPHEN
     Indication: PAIN
     Route: 048
     Dates: start: 20010711, end: 20010711
  20. ISOSORBIDE MONONITRATE. [Suspect]
     Active Substance: ISOSORBIDE MONONITRATE
     Indication: CORONARY ARTERY DISEASE
     Route: 048
     Dates: start: 20010703, end: 20010714
  21. CIPROFLOXACIN HYDROCHLORIDE. [Suspect]
     Active Substance: CIPROFLOXACIN HYDROCHLORIDE
     Indication: CHOLECYSTITIS
     Route: 048
     Dates: start: 20010710, end: 20010711
  22. CIPROFLOXACIN HYDROCHLORIDE. [Suspect]
     Active Substance: CIPROFLOXACIN HYDROCHLORIDE
     Route: 048
     Dates: start: 20010620, end: 20010628
  23. ZAROXOLYN [Suspect]
     Active Substance: METOLAZONE
     Indication: HYPERTENSION
     Route: 048
     Dates: start: 20010712, end: 20010713
  24. RAMIPRIL. [Suspect]
     Active Substance: RAMIPRIL
     Dosage: 10 MG, EVERY 29 DAY
     Route: 048
     Dates: start: 20010616, end: 20010714
  25. AMPHOTERICIN B. [Suspect]
     Active Substance: AMPHOTERICIN B
     Indication: ANTIFUNGAL PROPHYLAXIS
     Route: 048
     Dates: start: 20010703, end: 20010714
  26. EUNERPAN [Suspect]
     Active Substance: MELPERONE HYDROCHLORIDE
     Indication: RESTLESSNESS
     Dosage: 80-105 MG DAILY
     Route: 048
     Dates: start: 20010706, end: 20010712
  27. DIGOXIN. [Suspect]
     Active Substance: DIGOXIN
     Route: 048
     Dates: start: 20010703, end: 20010714
  28. CONCOR [Suspect]
     Active Substance: BISOPROLOL FUMARATE
     Indication: CORONARY ARTERY DISEASE
     Route: 048
     Dates: start: 20010616, end: 20010714
  29. METFORMIN HYDROCHLORIDE. [Suspect]
     Active Substance: METFORMIN HYDROCHLORIDE
     Indication: CORONARY ARTERY DISEASE
     Route: 048
     Dates: start: 20010616, end: 20010714
  30. METOCLOPRAMIDE HYDROCHLORIDE. [Suspect]
     Active Substance: METOCLOPRAMIDE HYDROCHLORIDE
     Indication: NAUSEA
     Route: 048
     Dates: start: 20010704, end: 20010712
  31. RAMIPRIL. [Suspect]
     Active Substance: RAMIPRIL
     Indication: CORONARY ARTERY DISEASE
     Route: 048
     Dates: start: 20010616, end: 20010714
  32. ASPIRIN 81 [Suspect]
     Active Substance: ASPIRIN
     Indication: CORONARY ARTERY DISEASE
     Route: 048
     Dates: start: 20010616, end: 20010714
  33. DECORTIN [Suspect]
     Active Substance: PREDNISONE
     Indication: RESTLESSNESS
  34. PERENTEROL [Suspect]
     Active Substance: SACCHAROMYCES CEREVISIAE
     Indication: DIARRHOEA
     Route: 048
     Dates: start: 20010711, end: 20010714
  35. AMPHOTERICIN B/TETRACYCLINE [Suspect]
     Active Substance: AMPHOTERICIN B\TETRACYCLINE
     Route: 048
     Dates: start: 20010703, end: 20010714
  36. ACETYLDIGOXIN [Suspect]
     Active Substance: .ALPHA.-ACETYLDIGOXIN
     Indication: CORONARY ARTERY DISEASE
     Route: 048
     Dates: start: 20010703
  37. BISOPROLOL FUMARATE. [Concomitant]
     Active Substance: BISOPROLOL FUMARATE
     Indication: PRODUCT USED FOR UNKNOWN INDICATION
     Dosage: UNK
     Route: 065
  38. POTASSIUM [Concomitant]
     Active Substance: POTASSIUM
     Indication: PRODUCT USED FOR UNKNOWN INDICATION
     Route: 065
     Dates: start: 20010703, end: 20010714
  39. INSULIN GLARGINE [Concomitant]
     Active Substance: INSULIN GLARGINE
     Indication: PRODUCT USED FOR UNKNOWN INDICATION
     Route: 065
     Dates: end: 20010629
  40. METOCLOPRAMIDE HYDROCHLORIDE. [Suspect]
     Active Substance: METOCLOPRAMIDE HYDROCHLORIDE
     Route: 048
     Dates: start: 20010704, end: 20010712
  41. CARBIMAZOLE [Suspect]
     Active Substance: CARBIMAZOLE
     Indication: HYPERTHYROIDISM
     Route: 048
     Dates: start: 20010621, end: 20010714
  42. NORVASC [Suspect]
     Active Substance: AMLODIPINE BESYLATE
     Indication: CORONARY ARTERY DISEASE
     Route: 048
     Dates: start: 20010703, end: 20010714
  43. BROMAZEPAM [Concomitant]
     Active Substance: BROMAZEPAM
     Indication: RESTLESSNESS
     Route: 065
     Dates: start: 20010713, end: 20010714
  44. PREDNISOLONE SODIUM SUCCINATE [Suspect]
     Active Substance: PREDNISOLONE SODIUM SUCCINATE
     Indication: DYSPNOEA
     Route: 042
     Dates: start: 20010703, end: 20010703
  45. SORTIS [Suspect]
     Active Substance: ATORVASTATIN
     Indication: HYPERLIPIDAEMIA
     Route: 048
     Dates: start: 20010616, end: 20010703
  46. LASIX [Suspect]
     Active Substance: FUROSEMIDE
     Indication: HYPERTENSION
     Route: 042
     Dates: start: 20010703, end: 20010714
  47. PANTOZOL [Suspect]
     Active Substance: PANTOPRAZOLE SODIUM
     Indication: PROPHYLAXIS
     Route: 048
  48. PANTOZOL [Suspect]
     Active Substance: PANTOPRAZOLE SODIUM
     Indication: DYSPNOEA
     Dosage: (DOSE DECREASED FROM 80 TO 40 MG DAILY)
     Route: 048
     Dates: start: 20010616, end: 20010714
  49. CAPTOPRIL. [Suspect]
     Active Substance: CAPTOPRIL
     Indication: CORONARY ARTERY DISEASE
     Dosage: 1MOL/ML
     Route: 048
     Dates: start: 20010616, end: 20010714
  50. EUNERPAN [Suspect]
     Active Substance: MELPERONE HYDROCHLORIDE
     Route: 048
     Dates: start: 20010706, end: 20010712
  51. EUNERPAN [Suspect]
     Active Substance: MELPERONE HYDROCHLORIDE
     Route: 048
     Dates: start: 20010703
  52. LANTUS [Suspect]
     Active Substance: INSULIN GLARGINE
     Indication: DIABETES MELLITUS
     Route: 058
     Dates: start: 20010616, end: 20010629
  53. HALDOL [Suspect]
     Active Substance: HALOPERIDOL
     Indication: RESTLESSNESS
     Route: 048
     Dates: start: 20010713, end: 20010714
  54. NOVODIGAL (.BETA.-ACETYLDIGOXIN) [Suspect]
     Active Substance: .BETA.-ACETYLDIGOXIN
     Indication: CORONARY ARTERY DISEASE
     Route: 048
     Dates: start: 20010703
  55. CAPTOPRIL. [Suspect]
     Active Substance: CAPTOPRIL
     Indication: CORONARY ARTERY DISEASE
     Route: 048
     Dates: start: 20010616, end: 20010714
  56. YEAST DRIED [Suspect]
     Active Substance: YEAST
     Indication: DIARRHOEA
     Route: 048
     Dates: start: 20010711, end: 20010714
  57. AMPHOTERICIN B/TETRACYCLINE [Suspect]
     Active Substance: AMPHOTERICIN B\TETRACYCLINE
     Indication: ANTIFUNGAL PROPHYLAXIS
     Route: 048
     Dates: start: 20010703, end: 20010714
  58. GLIMEPIRIDE. [Concomitant]
     Active Substance: GLIMEPIRIDE
     Indication: PRODUCT USED FOR UNKNOWN INDICATION
     Dates: start: 20010616, end: 20010703
  59. AMPHOTERICIN B. [Suspect]
     Active Substance: AMPHOTERICIN B
     Route: 048
     Dates: start: 20010703, end: 20010714
  60. PLAVIX [Suspect]
     Active Substance: CLOPIDOGREL BISULFATE
     Indication: CORONARY ARTERY DISEASE
     Route: 048
     Dates: start: 20010704, end: 20010714
  61. PANTOZOL [Suspect]
     Active Substance: PANTOPRAZOLE SODIUM
     Route: 042
     Dates: start: 20010703, end: 20010703
  62. ROCEPHIN [Suspect]
     Active Substance: CEFTRIAXONE SODIUM
     Indication: PYREXIA
     Route: 042
     Dates: start: 20010629, end: 20010703
  63. LEXOTANIL [Concomitant]
     Active Substance: BROMAZEPAM
     Indication: PRODUCT USED FOR UNKNOWN INDICATION
     Route: 065
     Dates: start: 20010713, end: 20010714

REACTIONS (15)
  - Cholelithiasis [Fatal]
  - Diarrhoea [Fatal]
  - Restlessness [Fatal]
  - Electrolyte imbalance [Fatal]
  - Hyperthyroidism [Fatal]
  - Erythema [Fatal]
  - Condition aggravated [Fatal]
  - Blister [Fatal]
  - Toxic epidermal necrolysis [Fatal]
  - Cholecystitis [Fatal]
  - Nausea [Fatal]
  - Restlessness [Fatal]
  - Multiple organ dysfunction syndrome [Fatal]
  - Respiratory disorder [Fatal]
  - Dermatitis exfoliative [Fatal]

NARRATIVE: CASE EVENT DATE: 20010703
